FAERS Safety Report 6779931-3 (Version None)
Quarter: 2010Q2

REPORT INFORMATION
  Report Type: 
  Country: None (occurrence: None)
  Receive Date: 20100618
  Receipt Date: 20100611
  Transmission Date: 20101027
  Serious: Yes (Hospitalization)
  Sender: FDA-Public Use
  Company Number: JP-EISAI INC.-E3810-03873-SPO-JP

PATIENT
  Age: 75 Year
  Sex: Male

DRUGS (1)
  1. PARIET (RABEPRAZOLE) [Suspect]
     Indication: REFLUX OESOPHAGITIS
     Dosage: UNKNOWN
     Route: 048
     Dates: start: 20100131, end: 20100215

REACTIONS (1)
  - HYPONATRAEMIA [None]
